FAERS Safety Report 9414896 (Version 3)
Quarter: 2013Q4

REPORT INFORMATION
  Report Type: Spontaneous
  Country: US (occurrence: US)
  Receive Date: 20130723
  Receipt Date: 20131111
  Transmission Date: 20140711
  Serious: No
  Sender: FDA-Public Use
  Company Number: US-VERTEX PHARMACEUTICALS INC-2013-008173

PATIENT
  Age: 24 Year
  Sex: Male

DRUGS (1)
  1. KALYDECO [Suspect]
     Indication: CYSTIC FIBROSIS
     Dosage: UNK
     Route: 048
     Dates: start: 201201

REACTIONS (7)
  - Urticaria [Recovered/Resolved]
  - Tremor [Unknown]
  - Dyspepsia [Unknown]
  - Malaise [Not Recovered/Not Resolved]
  - Blood glucose decreased [Unknown]
  - Headache [Not Recovered/Not Resolved]
  - Sinus congestion [Unknown]
